FAERS Safety Report 17842920 (Version 1)
Quarter: 2020Q2

REPORT INFORMATION
  Report Type: Spontaneous
  Country: CA (occurrence: CA)
  Receive Date: 20200530
  Receipt Date: 20200530
  Transmission Date: 20200714
  Serious: Yes (Other)
  Sender: FDA-Public Use
  Company Number: CA-ROCHE-2607802

PATIENT
  Age: 65 Year
  Sex: Male
  Weight: 94 kg

DRUGS (11)
  1. ESBRIET [Suspect]
     Active Substance: PIRFENIDONE
     Route: 048
  2. SANDOZ TELMISARTAN [Concomitant]
     Active Substance: TELMISARTAN
  3. PANTOPRAZOLE MAGNESIUM [Concomitant]
     Active Substance: PANTOPRAZOLE MAGNESIUM
  4. METOPROLOL. [Concomitant]
     Active Substance: METOPROLOL
  5. ACETAMINOPHEN;PSEUDOEPHEDRINE [Concomitant]
  6. DOXYLAMINE SUCCINATE. [Concomitant]
     Active Substance: DOXYLAMINE SUCCINATE
  7. SUCCINATE SODIUM [Concomitant]
  8. MUCOMYST [Concomitant]
     Active Substance: ACETYLCYSTEINE
  9. ESBRIET [Suspect]
     Active Substance: PIRFENIDONE
     Indication: IDIOPATHIC PULMONARY FIBROSIS
     Route: 048
  10. ESBRIET [Suspect]
     Active Substance: PIRFENIDONE
     Route: 048
  11. ROSUVASTATIN. [Concomitant]
     Active Substance: ROSUVASTATIN

REACTIONS (7)
  - Lung diffusion test decreased [Recovered/Resolved]
  - Arteriosclerosis coronary artery [Recovered/Resolved]
  - Pulmonary function test abnormal [Recovered/Resolved]
  - Nasopharyngitis [Recovered/Resolved]
  - Walking distance test abnormal [Recovered/Resolved]
  - Myocardial infarction [Recovered/Resolved]
  - Dyspnoea exertional [Recovered/Resolved]
